FAERS Safety Report 15804522 (Version 1)
Quarter: 2019Q1

REPORT INFORMATION
  Report Type: Spontaneous
  Country: US (occurrence: US)
  Receive Date: 20190109
  Receipt Date: 20190109
  Transmission Date: 20190417
  Serious: Yes (Death, Hospitalization)
  Sender: FDA-Public Use
  Company Number: US-PFIZER INC-2019007205

PATIENT
  Age: 13 Month
  Sex: Male
  Weight: 7.7 kg

DRUGS (3)
  1. AMPHETAMINE [Suspect]
     Active Substance: AMPHETAMINE
     Dosage: UNK (ASPIRATION)
     Route: 048
  2. LORAZEPAM. [Suspect]
     Active Substance: LORAZEPAM
     Indication: SEIZURE
     Dosage: UNK, (ASPIRATION)
     Route: 048
  3. METHAMPHETAMINE HCL [Suspect]
     Active Substance: METHAMPHETAMINE HYDROCHLORIDE
     Dosage: UNK (ASPIRATION)
     Route: 048

REACTIONS (4)
  - Drug ineffective [Fatal]
  - Accidental exposure to product [Fatal]
  - Cardiac arrest [Fatal]
  - Hypotension [Fatal]

NARRATIVE: CASE EVENT DATE: 2017
